FAERS Safety Report 7424831-9 (Version None)
Quarter: 2011Q2

REPORT INFORMATION
  Report Type: 
  Country: None (occurrence: None)
  Receive Date: 20110419
  Receipt Date: 20110414
  Transmission Date: 20111010
  Serious: Yes (Other)
  Sender: FDA-Public Use
  Company Number: US-ABBOTT-11P-163-0719861-00

PATIENT
  Sex: Female
  Weight: 71.278 kg

DRUGS (28)
  1. INTRALIPID 10% [Concomitant]
     Indication: IN VITRO FERTILISATION
     Route: 042
     Dates: start: 20110110, end: 20110307
  2. CALCIUM [Concomitant]
     Indication: MINERAL SUPPLEMENTATION
     Dates: start: 20110102, end: 20110307
  3. VITAMIN D [Concomitant]
     Indication: VITAMIN SUPPLEMENTATION
     Dates: start: 20110102, end: 20110307
  4. MELATONIN [Concomitant]
     Indication: IN VITRO FERTILISATION
     Route: 048
     Dates: start: 20110102, end: 20110115
  5. DEXAMETHASONE [Concomitant]
     Indication: IN VITRO FERTILISATION
     Route: 048
     Dates: start: 20110102, end: 20110115
  6. GONAL-E [Concomitant]
     Indication: BLOOD FOLLICLE STIMULATING HORMONE ABNORMAL
     Route: 050
     Dates: start: 20110103, end: 20110113
  7. MENOPUR [Concomitant]
     Indication: IN VITRO FERTILISATION
     Route: 050
     Dates: start: 20110103, end: 20110113
  8. ASPIRIN [Concomitant]
     Dates: start: 20110117, end: 20110302
  9. PRENATAL VITAMINS [Concomitant]
     Indication: PRODUCT USED FOR UNKNOWN INDICATION
     Route: 048
     Dates: start: 20110102, end: 20110307
  10. VITAMIN D [Concomitant]
     Indication: VITAMIN D DEFICIENCY
     Route: 048
     Dates: start: 20110102, end: 20110307
  11. INOSITOL [Concomitant]
     Indication: IN VITRO FERTILISATION
     Route: 048
     Dates: start: 20110102, end: 20110115
  12. PYCNOGENOL [Concomitant]
     Indication: SUPPLEMENTATION THERAPY
     Route: 048
     Dates: start: 20110102, end: 20110115
  13. CLIMARA [Concomitant]
     Indication: IN VITRO FERTILISATION
     Dosage: PATCH, FACE, SCALP
     Route: 062
  14. COENZYM Q10 [Concomitant]
     Indication: IN VITRO FERTILISATION
     Route: 048
     Dates: start: 20110102, end: 20110115
  15. DEXAMETHASONE [Concomitant]
     Dates: start: 20110116, end: 20110307
  16. ASPIRIN [Concomitant]
     Dosage: 3.5 WEEK
     Route: 048
     Dates: start: 20110304, end: 20110307
  17. HUMIRA [Suspect]
     Indication: IN VITRO FERTILISATION
     Route: 050
     Dates: start: 20110111, end: 20110207
  18. RESVERATROL [Concomitant]
     Indication: SUPPLEMENTATION THERAPY
     Route: 048
     Dates: start: 20110102, end: 20110115
  19. LOVENOX [Concomitant]
     Indication: IN VITRO FERTILISATION
     Route: 050
     Dates: start: 20110118, end: 20110302
  20. IMMUNE GLOBULIN INTRAVENOUS (HUMAN) [Concomitant]
     Indication: IN VITRO FERTILISATION
     Route: 042
     Dates: start: 20110110, end: 20110110
  21. ASPIRIN [Concomitant]
     Indication: PRODUCT USED FOR UNKNOWN INDICATION
     Route: 048
     Dates: start: 20110102, end: 20110111
  22. FOLGARD [Concomitant]
     Indication: IN VITRO FERTILISATION
     Route: 048
     Dates: start: 20110102, end: 20110307
  23. VITAMIN K TAB [Concomitant]
     Indication: VITAMIN SUPPLEMENTATION
     Route: 048
     Dates: start: 20110102, end: 20110307
  24. COFFEE [Concomitant]
     Indication: PRODUCT USED FOR UNKNOWN INDICATION
     Dosage: 1/2 CAF, 1/2 DECAF 0.5 SERVING
     Route: 048
     Dates: start: 20110102, end: 20110308
  25. LEVOTHYROXINE SODIUM [Concomitant]
     Indication: THYROID DISORDER
     Dosage: TIROSINT BRAND FOR
     Route: 048
     Dates: start: 20110128, end: 20110227
  26. LEVOTHYROXINE SODIUM [Concomitant]
     Route: 048
     Dates: start: 20110228, end: 20110308
  27. GANIRELIX ACETATE INJECTION [Concomitant]
     Indication: PRODUCT USED FOR UNKNOWN INDICATION
     Route: 050
     Dates: start: 20110107, end: 20110113
  28. PROGESTOGENS AND ESTROGENS IN COMBINATION [Concomitant]
     Indication: OESTROGEN REPLACEMENT THERAPY
     Route: 067
     Dates: start: 20110117, end: 20110307

REACTIONS (1)
  - ANTEPARTUM HAEMORRHAGE [None]
